FAERS Safety Report 10750648 (Version 1)
Quarter: 2015Q1

REPORT INFORMATION
  Report Type: Spontaneous
  Country: US (occurrence: US)
  Receive Date: 20150130
  Receipt Date: 20150130
  Transmission Date: 20150721
  Serious: No
  Sender: FDA-Public Use
  Company Number: US-ASTRAZENECA-2015SE06969

PATIENT
  Age: 53 Year
  Sex: Female
  Weight: 71.2 kg

DRUGS (6)
  1. TROGESTERONE [Concomitant]
     Indication: HORMONE THERAPY
     Dates: start: 201010
  2. CRESTOR [Suspect]
     Active Substance: ROSUVASTATIN CALCIUM
     Route: 048
     Dates: start: 2011, end: 201409
  3. CRESTOR [Suspect]
     Active Substance: ROSUVASTATIN CALCIUM
     Route: 048
     Dates: start: 201409
  4. CRESTOR [Suspect]
     Active Substance: ROSUVASTATIN CALCIUM
     Route: 048
     Dates: start: 201010, end: 2011
  5. ESTRADIOL  BIEST [Concomitant]
     Indication: HORMONE REPLACEMENT THERAPY
     Dosage: 2.5 MG EVERY DAY, TWO TO FOUR CLICKS
     Route: 061
     Dates: start: 201010
  6. CRESTOR [Suspect]
     Active Substance: ROSUVASTATIN CALCIUM
     Route: 048

REACTIONS (17)
  - Musculoskeletal stiffness [Not Recovered/Not Resolved]
  - Blood testosterone increased [Unknown]
  - Weight increased [Unknown]
  - Blood creatinine increased [Unknown]
  - Joint stiffness [Not Recovered/Not Resolved]
  - Feeling abnormal [Unknown]
  - Blood glucose increased [Unknown]
  - Hormone level abnormal [Unknown]
  - Progesterone decreased [Unknown]
  - Renal impairment [Unknown]
  - Oestradiol increased [Unknown]
  - Pruritus [Not Recovered/Not Resolved]
  - Osteoporosis [Not Recovered/Not Resolved]
  - Cardiac valve disease [Unknown]
  - Breast tenderness [Unknown]
  - General physical health deterioration [Unknown]
  - Drug effect incomplete [Unknown]

NARRATIVE: CASE EVENT DATE: 2014
